FAERS Safety Report 9275105 (Version 2)
Quarter: 2013Q2

REPORT INFORMATION
  Report Type: Spontaneous
  Country: CA (occurrence: CA)
  Receive Date: 20130507
  Receipt Date: 20130521
  Transmission Date: 20140414
  Serious: Yes (Hospitalization, Other)
  Sender: FDA-Public Use
  Company Number: CA-PFIZER INC-2013141166

PATIENT
  Age: 66 Year
  Sex: Male

DRUGS (9)
  1. INLYTA [Suspect]
     Dosage: 5 MG, 2X/DAY
     Route: 048
  2. INLYTA [Suspect]
     Dosage: 6 MG, UNK
     Route: 048
     Dates: start: 201301, end: 20130226
  3. INLYTA [Suspect]
     Dosage: 7 MG, 2X/DAY
     Route: 048
     Dates: start: 20130227, end: 20130416
  4. COVERSYL [Concomitant]
     Indication: HYPERTENSION
     Dosage: UNK
  5. AMLODIPINE [Concomitant]
     Indication: HYPERTENSION
     Dosage: UNK
  6. ATORVASTATIN [Concomitant]
     Indication: BLOOD CHOLESTEROL
     Dosage: UNK
  7. INDAPAMIDE [Concomitant]
     Dosage: UNK
  8. IMODIUM [Concomitant]
     Dosage: UNK
  9. ZOFRAN [Concomitant]
     Dosage: UNK

REACTIONS (5)
  - Renal failure acute [Recovered/Resolved]
  - Blood creatinine increased [Recovered/Resolved]
  - Hypertension [Recovered/Resolved]
  - Disease progression [Unknown]
  - Neoplasm malignant [Unknown]
